FAERS Safety Report 4649681-8 (Version None)
Quarter: 2005Q2

REPORT INFORMATION
  Report Type: 
  Country: None (occurrence: None)
  Receive Date: 20050502
  Receipt Date: 20050421
  Transmission Date: 20051028
  Serious: Yes (Hospitalization)
  Sender: FDA-Public Use
  Company Number: 200513574GDDC

PATIENT
  Age: 76 Year
  Sex: Male
  Weight: 85 kg

DRUGS (4)
  1. AMARYL [Suspect]
     Indication: DIABETES MELLITUS
     Route: 048
     Dates: start: 19850101
  2. KREDEX [Concomitant]
     Dates: start: 20041230
  3. ZOCOR [Concomitant]
  4. ALLOPUR [Concomitant]

REACTIONS (1)
  - SYNCOPE [None]
